FAERS Safety Report 5853316-6 (Version None)
Quarter: 2008Q3

REPORT INFORMATION
  Report Type: 
  Country: None (occurrence: None)
  Receive Date: 20080821
  Receipt Date: 20080813
  Transmission Date: 20090109
  Serious: Yes (Other)
  Sender: FDA-Public Use
  Company Number: DE-MERCK-0808DEU00050

PATIENT
  Sex: Male

DRUGS (1)
  1. PROPECIA [Suspect]
     Indication: ANDROGENETIC ALOPECIA
     Route: 048
     Dates: start: 20080712, end: 20080728

REACTIONS (4)
  - ANXIETY [None]
  - HYPERHIDROSIS [None]
  - NECK PAIN [None]
  - PANIC DISORDER [None]
